FAERS Safety Report 25079835 (Version 1)
Quarter: 2025Q1

REPORT INFORMATION
  Report Type: Spontaneous
  Country: US (occurrence: None)
  Receive Date: 20250314
  Receipt Date: 20250314
  Transmission Date: 20250409
  Serious: No
  Sender: FDA-CTU
  Company Number: None

PATIENT
  Age: 14 Year
  Sex: Male

DRUGS (1)
  1. HADLIMA [Suspect]
     Active Substance: ADALIMUMAB-BWWD
     Indication: Juvenile idiopathic arthritis
     Route: 058
     Dates: end: 20250303

REACTIONS (2)
  - Pain [None]
  - Contusion [None]

NARRATIVE: CASE EVENT DATE: 20250206
